FAERS Safety Report 7749178-2 (Version None)
Quarter: 2011Q3

REPORT INFORMATION
  Report Type: 
  Country: None (occurrence: None)
  Receive Date: 20110907
  Receipt Date: 20110830
  Transmission Date: 20111222
  Serious: Yes (Hospitalization, Disabling, Other)
  Sender: FDA-Public Use
  Company Number: 2011SP029568

PATIENT
  Age: 43 Year
  Sex: Female
  Weight: 56 kg

DRUGS (8)
  1. REBETOL [Suspect]
     Indication: HEPATITIS C
     Dosage: 600 MG;QD;PO
     Route: 048
     Dates: start: 20071018, end: 20080604
  2. HUMALOG [Concomitant]
  3. PEG-INTRON [Suspect]
     Indication: HEPATITIS C
     Dosage: 100 MCG; QW; SC; 50 MCG; QW; SC
     Route: 058
     Dates: start: 20071025, end: 20080604
  4. PEG-INTRON [Suspect]
     Indication: HEPATITIS C
     Dosage: 100 MCG; QW; SC; 50 MCG; QW; SC
     Route: 058
     Dates: start: 20071018, end: 20071025
  5. SOLANTAL [Concomitant]
  6. URSO 250 [Concomitant]
  7. HUMACART-N [Concomitant]
  8. QVAR 40 [Concomitant]

REACTIONS (10)
  - ENCEPHALOPATHY [None]
  - NEUTROPENIA [None]
  - MEMORY IMPAIRMENT [None]
  - NEUROPATHY PERIPHERAL [None]
  - NEPHROPATHY [None]
  - CEREBRAL HYPOPERFUSION [None]
  - DIABETES MELLITUS [None]
  - HYPOGLYCAEMIA [None]
  - PRIMARY HYPOTHYROIDISM [None]
  - CONDITION AGGRAVATED [None]
